FAERS Safety Report 6139850-2 (Version None)
Quarter: 2009Q1

REPORT INFORMATION
  Report Type: 
  Country: None (occurrence: None)
  Receive Date: 20090331
  Receipt Date: 20090331
  Transmission Date: 20090719
  Serious: Yes (Life-Threatening, Hospitalization)
  Sender: FDA-Public Use
  Company Number: None

PATIENT
  Age: 87 Year
  Sex: Male

DRUGS (1)
  1. SIMVASTATIN [Suspect]
     Indication: BLOOD CHOLESTEROL
     Dates: end: 20090224

REACTIONS (6)
  - CONFUSIONAL STATE [None]
  - FALL [None]
  - LETHARGY [None]
  - MYOSITIS [None]
  - NERVOUS SYSTEM DISORDER [None]
  - RHABDOMYOLYSIS [None]
